FAERS Safety Report 5566835-7 (Version None)
Quarter: 2007Q4

REPORT INFORMATION
  Report Type: 
  Country: None (occurrence: None)
  Receive Date: 20071219
  Receipt Date: 20071210
  Transmission Date: 20080405
  Serious: Yes (Hospitalization)
  Sender: FDA-Public Use
  Company Number: D0053748A

PATIENT
  Age: 65 Year
  Sex: Female

DRUGS (10)
  1. SEROXAT [Suspect]
     Dosage: 10MG PER DAY
     Route: 048
     Dates: start: 20050324
  2. ABILIFY [Suspect]
     Dosage: 5MG PER DAY
     Route: 048
     Dates: start: 20050325, end: 20050330
  3. SEROQUEL [Suspect]
     Dosage: 400MG PER DAY
     Route: 065
  4. DIAZEPAM [Concomitant]
     Dosage: 15MG PER DAY
     Route: 048
     Dates: start: 20050322
  5. AKINETON [Concomitant]
     Dosage: 4MG PER DAY
     Route: 048
     Dates: start: 20050322, end: 20050330
  6. ASPIRIN [Concomitant]
     Route: 065
  7. L-THYROXIN [Concomitant]
     Route: 065
  8. ZOCOR [Concomitant]
     Route: 065
  9. HCT HEXAL [Concomitant]
     Route: 065
  10. KALINOR [Concomitant]
     Route: 065

REACTIONS (14)
  - AFFECTIVE DISORDER [None]
  - AMIMIA [None]
  - CHILLS [None]
  - COGNITIVE DISORDER [None]
  - COGWHEEL RIGIDITY [None]
  - DEMENTIA [None]
  - DRUG INTERACTION [None]
  - DYSARTHRIA [None]
  - HYPOKINESIA [None]
  - MUTISM [None]
  - NEUROLEPTIC MALIGNANT SYNDROME [None]
  - PARKINSONISM [None]
  - SOMNOLENCE [None]
  - STUPOR [None]
